FAERS Safety Report 23709031 (Version 1)
Quarter: 2024Q2

REPORT INFORMATION
  Report Type: Spontaneous
  Country: US (occurrence: US)
  Receive Date: 20240404
  Receipt Date: 20240404
  Transmission Date: 20240716
  Serious: Yes (Other)
  Sender: FDA-Public Use
  Company Number: US-AMGEN-USASP2024065201

PATIENT
  Age: 49 Year
  Sex: Female

DRUGS (5)
  1. BEVACIZUMAB [Suspect]
     Active Substance: BEVACIZUMAB
     Indication: Squamous cell carcinoma of the cervix
     Dosage: UNK
     Route: 065
  2. CARBOPLATIN [Suspect]
     Active Substance: CARBOPLATIN
     Indication: Squamous cell carcinoma of the cervix
     Dosage: UNK
     Route: 065
  3. PACLITAXEL [Suspect]
     Active Substance: PACLITAXEL
     Indication: Squamous cell carcinoma of the cervix
     Dosage: UNK
     Route: 065
  4. PEMBROLIZUMAB [Concomitant]
     Active Substance: PEMBROLIZUMAB
     Indication: Squamous cell carcinoma of the cervix
     Dosage: UNK UNK, Q3WK
     Route: 065
  5. TISOTUMAB VEDOTIN [Concomitant]
     Active Substance: TISOTUMAB VEDOTIN
     Indication: Squamous cell carcinoma of the cervix
     Dosage: UNK UNK, Q3WK
     Route: 065

REACTIONS (3)
  - Squamous cell carcinoma of the cervix [Unknown]
  - Heart failure with reduced ejection fraction [Unknown]
  - Thrombocytopenia [Unknown]
